FAERS Safety Report 25626327 (Version 3)
Quarter: 2025Q3

REPORT INFORMATION
  Report Type: Spontaneous
  Country: US (occurrence: US)
  Receive Date: 20250731
  Receipt Date: 20250814
  Transmission Date: 20251020
  Serious: Yes (Hospitalization, Other)
  Sender: BRISTOL-MYERS SQUIBB COMPANY
  Company Number: US-BRISTOL-MYERS SQUIBB COMPANY-2025-106113

PATIENT
  Age: 60 Year
  Sex: Male
  Weight: 91.1 kg

DRUGS (7)
  1. NIVOLUMAB [Suspect]
     Active Substance: NIVOLUMAB
     Indication: Metastatic malignant melanoma
     Dates: start: 202409
  2. NIVOLUMAB [Suspect]
     Active Substance: NIVOLUMAB
     Dates: start: 20241118
  3. NIVOLUMAB [Suspect]
     Active Substance: NIVOLUMAB
     Dates: end: 20250203
  4. NELVUTAMIG [Suspect]
     Active Substance: NELVUTAMIG
     Indication: Metastatic malignant melanoma
     Dates: start: 202409
  5. NELVUTAMIG [Suspect]
     Active Substance: NELVUTAMIG
     Dates: start: 20241118
  6. NELVUTAMIG [Suspect]
     Active Substance: NELVUTAMIG
     Dates: end: 20250203
  7. ATORVASTATIN [Concomitant]
     Active Substance: ATORVASTATIN
     Indication: Hyperlipidaemia
     Route: 048
     Dates: start: 20240903

REACTIONS (4)
  - Adrenal insufficiency [Unknown]
  - Metastases to liver [Unknown]
  - Hypothyroidism [Unknown]
  - Immune-mediated hypophysitis [Unknown]

NARRATIVE: CASE EVENT DATE: 20240101
